FAERS Safety Report 23634195 (Version 1)
Quarter: 2024Q1

REPORT INFORMATION
  Report Type: Spontaneous
  Country: US (occurrence: US)
  Receive Date: 20240314
  Receipt Date: 20240314
  Transmission Date: 20240410
  Serious: No
  Sender: FDA-Public Use
  Company Number: US-ABBVIE-5673513

PATIENT
  Age: 67 Year
  Sex: Female
  Weight: 73.481 kg

DRUGS (1)
  1. RINVOQ [Suspect]
     Active Substance: UPADACITINIB
     Indication: Rash
     Dosage: FORM STRENGTH: 15 MG
     Route: 048
     Dates: start: 20240102, end: 20240227

REACTIONS (3)
  - Back pain [Recovered/Resolved]
  - Breast disorder [Unknown]
  - Pain in extremity [Recovered/Resolved]

NARRATIVE: CASE EVENT DATE: 20240101
